FAERS Safety Report 14728198 (Version 1)
Quarter: 2018Q2

REPORT INFORMATION
  Report Type: Spontaneous
  Country: US (occurrence: US)
  Receive Date: 20180406
  Receipt Date: 20180406
  Transmission Date: 20180711
  Serious: Yes (Death)
  Sender: FDA-Public Use
  Company Number: US-FRESENIUS KABI-FK201804071

PATIENT
  Sex: Male

DRUGS (1)
  1. HYDROMORPHONE HCL [Suspect]
     Active Substance: HYDROMORPHONE HYDROCHLORIDE
     Indication: PRODUCT USED FOR UNKNOWN INDICATION
     Route: 065
     Dates: start: 2010, end: 2010

REACTIONS (3)
  - Drug prescribing error [Fatal]
  - Accidental overdose [Fatal]
  - Respiratory depression [Fatal]

NARRATIVE: CASE EVENT DATE: 2010
